FAERS Safety Report 17067064 (Version 1)
Quarter: 2019Q4

REPORT INFORMATION
  Report Type: Spontaneous
  Country: US (occurrence: US)
  Receive Date: 20191123
  Receipt Date: 20191123
  Transmission Date: 20200122
  Serious: No
  Sender: FDA-Public Use
  Company Number: US-TEVA-2019-US-1139751

PATIENT
  Age: 42 Year
  Sex: Female

DRUGS (4)
  1. METRONIDAZOLE TEVA [Suspect]
     Active Substance: METRONIDAZOLE
     Indication: DIVERTICULITIS
     Dosage: TWO DOSES
     Route: 042
     Dates: start: 20191107, end: 20191108
  2. CIPROFLOXACIN AUROBINDO^S [Suspect]
     Active Substance: CIPROFLOXACIN HYDROCHLORIDE
     Indication: DIVERTICULITIS
     Dosage: TWO DOSES
     Route: 042
     Dates: start: 20191107, end: 20191108
  3. CIPROFLOXACIN AUROBINDO^S [Suspect]
     Active Substance: CIPROFLOXACIN HYDROCHLORIDE
     Indication: COLONIC ABSCESS
     Dosage: TWO DOSES
     Route: 048
     Dates: start: 20191107, end: 20191108
  4. METRONIDAZOLE TEVA [Suspect]
     Active Substance: METRONIDAZOLE
     Indication: COLONIC ABSCESS
     Dosage: TWO DOSES
     Route: 048
     Dates: start: 20191107, end: 20191108

REACTIONS (8)
  - Arthralgia [Recovered/Resolved]
  - Burning sensation [Recovered/Resolved]
  - Dizziness [Recovered/Resolved]
  - Paraesthesia [Not Recovered/Not Resolved]
  - Hypoaesthesia [Recovered/Resolved]
  - Feeling hot [Recovered/Resolved]
  - Muscular weakness [Not Recovered/Not Resolved]
  - Paraesthesia [Recovered/Resolved]

NARRATIVE: CASE EVENT DATE: 20191108
